FAERS Safety Report 23397454 (Version 1)
Quarter: 2024Q1

REPORT INFORMATION
  Report Type: Spontaneous
  Country: EG (occurrence: EG)
  Receive Date: 20240112
  Receipt Date: 20240112
  Transmission Date: 20240410
  Serious: Yes (Death, Life-Threatening, Other)
  Sender: FDA-Public Use
  Company Number: EG-HIKMA PHARMACEUTICALS-EG-H14001-24-00169

PATIENT
  Age: 58 Year
  Sex: Female
  Weight: 70 kg

DRUGS (4)
  1. IRINOTECAN HYDROCHLORIDE [Suspect]
     Active Substance: IRINOTECAN HYDROCHLORIDE
     Indication: Pancreatic carcinoma
     Dosage: 306 MILLIGRAM, EVERY 15 DAYS
     Route: 042
     Dates: start: 20231207
  2. OXALIPLATIN [Suspect]
     Active Substance: OXALIPLATIN
     Indication: Pancreatic carcinoma
     Dosage: 144.5 MILLIGRAM, EVERY 15 DAYS
     Route: 042
     Dates: start: 20231207
  3. FLUOROURACIL [Suspect]
     Active Substance: FLUOROURACIL
     Dosage: 1020 MILLIGRAM, (SECOND BOTTLE), OVER 11 HOURS, EVERY 15 DAYS
     Route: 042
     Dates: start: 20231208
  4. FLUOROURACIL [Suspect]
     Active Substance: FLUOROURACIL
     Indication: Pancreatic carcinoma
     Dosage: 680 MILLIGRAM, (FIRST BOTTLE), OVER 11 HOURS
     Route: 042
     Dates: start: 20231207

REACTIONS (3)
  - Cardiac arrest [Fatal]
  - Condition aggravated [Fatal]
  - Dyspnoea [Fatal]

NARRATIVE: CASE EVENT DATE: 20231208
